FAERS Safety Report 4486448-8 (Version None)
Quarter: 2004Q4

REPORT INFORMATION
  Report Type: 
  Country: None (occurrence: None)
  Receive Date: 20041026
  Receipt Date: 20041026
  Transmission Date: 20050328
  Serious: Yes (Death)
  Sender: FDA-Public Use
  Company Number: None

PATIENT
  Age: 15 Year
  Sex: Male
  Weight: 72.5755 kg

DRUGS (1)
  1. METHADONE HCL [Suspect]

REACTIONS (2)
  - DRUG ABUSER [None]
  - SELF-MEDICATION [None]
